FAERS Safety Report 8324766 (Version 3)
Quarter: 2013Q1

REPORT INFORMATION
  Report Type: Report from Study
  Country: FR (occurrence: FR)
  Receive Date: 20120106
  Receipt Date: 20130219
  Transmission Date: 20140127
  Serious: Yes (Death, Life-Threatening, Hospitalization, Other)
  Sender: FDA-Public Use
  Company Number: FR-ASTELLAS-2011EU009616

PATIENT
  Age: 66 Year
  Sex: Female
  Weight: 51 kg

DRUGS (6)
  1. MICAFUNGIN INJECTION [Suspect]
     Indication: SYSTEMIC CANDIDA
     Dosage: 100 MG, UNKNOWN/D
     Route: 042
     Dates: start: 20110906, end: 20110926
  2. MICAFUNGIN INJECTION [Suspect]
     Indication: PERITONITIS
  3. IMIPENEM [Concomitant]
     Indication: PERITONITIS
     Dosage: 500 MG, QID
     Route: 042
     Dates: start: 20110904, end: 20110925
  4. CIPROFLOXACIN [Concomitant]
     Indication: PERITONITIS
     Dosage: 400 MG, BID
     Route: 042
     Dates: start: 20110904, end: 20110908
  5. VANCOMYCIN [Concomitant]
     Indication: PERITONITIS
     Dosage: 500 MG, UNKNOWN/D
     Route: 042
     Dates: start: 20110904, end: 20110914
  6. LINEZOLID [Concomitant]
     Indication: PERITONITIS
     Dosage: 600 MG, BID
     Route: 042
     Dates: start: 20110904, end: 20110925

REACTIONS (7)
  - Drug ineffective [Fatal]
  - Multi-organ failure [Fatal]
  - Septic shock [Fatal]
  - Fungal infection [Fatal]
  - Neurological decompensation [Fatal]
  - Disturbance in attention [Fatal]
  - Eye disorder [Fatal]
